FAERS Safety Report 13268410 (Version 7)
Quarter: 2017Q4

REPORT INFORMATION
  Report Type: Spontaneous
  Country: US (occurrence: US)
  Receive Date: 20170224
  Receipt Date: 20171122
  Transmission Date: 20180320
  Serious: Yes (Hospitalization, Congenital Anomaly, Other)
  Sender: FDA-Public Use
  Company Number: PHEH2017US005502

PATIENT
  Sex: Female

DRUGS (2)
  1. ZOFRAN [Suspect]
     Active Substance: ONDANSETRON HYDROCHLORIDE
     Indication: FOETAL EXPOSURE DURING PREGNANCY
     Dosage: MOTHER^S DOSE: 08 MG, Q6H
     Route: 064
  2. ZOFRAN [Suspect]
     Active Substance: ONDANSETRON HYDROCHLORIDE
     Indication: FOETAL EXPOSURE DURING PREGNANCY
     Dosage: MOTHER^S DOSE: 02 MG/ML, UNK
     Route: 064

REACTIONS (50)
  - Supraventricular tachycardia [Unknown]
  - Atrial septal defect [Unknown]
  - Headache [Unknown]
  - Methylenetetrahydrofolate reductase deficiency [Unknown]
  - Premature baby [Unknown]
  - Cardiomegaly [Unknown]
  - Ear infection [Unknown]
  - Chest pain [Unknown]
  - Tricuspid valve incompetence [Unknown]
  - Sepsis neonatal [Unknown]
  - Cellulitis [Unknown]
  - Eczema [Unknown]
  - Erythema [Unknown]
  - Palpitations [Unknown]
  - Laevocardia [Unknown]
  - Deep vein thrombosis [Unknown]
  - Supraventricular extrasystoles [Unknown]
  - Fever neonatal [Unknown]
  - Otorrhoea [Unknown]
  - Otitis media [Unknown]
  - Venous occlusion [Unknown]
  - Decreased appetite [Unknown]
  - Conduction disorder [Unknown]
  - Nasopharyngitis [Unknown]
  - Effusion [Unknown]
  - Rhinorrhoea [Unknown]
  - Rhinitis [Unknown]
  - Viral infection [Unknown]
  - Dizziness [Unknown]
  - Arrhythmia [Unknown]
  - Atrial tachycardia [Unknown]
  - Tachycardia paroxysmal [Unknown]
  - Injury [Unknown]
  - Anaemia neonatal [Unknown]
  - Upper respiratory tract infection [Unknown]
  - Abdominal pain [Unknown]
  - Syncope [Unknown]
  - Rash [Unknown]
  - Left-to-right cardiac shunt [Unknown]
  - Pneumonia [Unknown]
  - Anomalous atrioventricular excitation [Unknown]
  - Foetal exposure during pregnancy [Unknown]
  - Dyspnoea [Unknown]
  - Ebstein^s anomaly [Unknown]
  - Wolff-Parkinson-White syndrome congenital [Unknown]
  - Tricuspid valve disease [Unknown]
  - Right atrial enlargement [Unknown]
  - Nasal congestion [Unknown]
  - Sinus arrhythmia [Unknown]
  - Cough [Unknown]
